FAERS Safety Report 7400753-4 (Version None)
Quarter: 2011Q2

REPORT INFORMATION
  Report Type: 
  Country: None (occurrence: None)
  Receive Date: 20110407
  Receipt Date: 20110331
  Transmission Date: 20111010
  Serious: Yes (Hospitalization)
  Sender: FDA-Public Use
  Company Number: A0920892A

PATIENT
  Sex: Female

DRUGS (7)
  1. PRILOSEC [Concomitant]
  2. ZESTRIL [Concomitant]
  3. AVANDIA [Suspect]
     Dosage: 8MG PER DAY
     Route: 048
  4. GLUCOPHAGE [Concomitant]
  5. GLUCOTROL [Concomitant]
  6. PAXIL [Concomitant]
  7. CRESTOR [Concomitant]

REACTIONS (1)
  - OESOPHAGEAL DISORDER [None]
